FAERS Safety Report 5501308-9 (Version None)
Quarter: 2007Q4

REPORT INFORMATION
  Report Type: 
  Country: None (occurrence: None)
  Receive Date: 20071026
  Receipt Date: 20071017
  Transmission Date: 20080405
  Serious: Yes (Other)
  Sender: FDA-Public Use
  Company Number: 2007SP018043

PATIENT
  Age: 48 Year
  Sex: Male

DRUGS (9)
  1. PEG-INTRON [Suspect]
     Indication: HEPATITIS C
     Dosage: 120 MCG;QW;SC
     Route: 058
     Dates: start: 20061227, end: 20070828
  2. REBETOL [Suspect]
     Indication: HEPATITIS C
     Dosage: 1000 MG;QD;PO
     Route: 048
     Dates: start: 20061227, end: 20070828
  3. HCV-796 [Suspect]
     Indication: HEPATITIS C
     Dosage: 1000 MG;QD;PO
     Route: 048
     Dates: start: 20061227, end: 20070810
  4. EFFEXOR (CON.) [Concomitant]
  5. ACETAMINOPHEN (CON.) [Concomitant]
  6. RIBOFLAVIN (CON.) [Concomitant]
  7. VITAMIN B (CON.) [Concomitant]
  8. IRON (CON.) [Concomitant]
  9. METRONIDAZOLE (CON.) [Concomitant]

REACTIONS (4)
  - ALANINE AMINOTRANSFERASE INCREASED [None]
  - ASPARTATE AMINOTRANSFERASE INCREASED [None]
  - HEPATIC ENZYME INCREASED [None]
  - OCULAR ICTERUS [None]
